FAERS Safety Report 6127745-X (Version None)
Quarter: 2009Q1

REPORT INFORMATION
  Report Type: 
  Country: None (occurrence: None)
  Receive Date: 20090319
  Receipt Date: 20090319
  Transmission Date: 20090719
  Serious: No
  Sender: FDA-Public Use
  Company Number: None

PATIENT
  Sex: Female
  Weight: 59.09 kg

DRUGS (4)
  1. CELEXA [Suspect]
     Dosage: 10 MG TABLET 15 MG QD ORAL
     Route: 048
     Dates: start: 20090129, end: 20090319
  2. ATIVAN [Concomitant]
  3. CLOBETASOL PROPIONATE [Concomitant]
  4. NORVASC [Concomitant]

REACTIONS (1)
  - SEXUAL DYSFUNCTION [None]
